FAERS Safety Report 24545939 (Version 1)
Quarter: 2024Q4

REPORT INFORMATION
  Report Type: Spontaneous
  Country: DE (occurrence: DE)
  Receive Date: 20241024
  Receipt Date: 20241024
  Transmission Date: 20250115
  Serious: Yes (Other)
  Sender: REGENERON
  Company Number: DE-BAYER-2024A142114

PATIENT
  Age: 92 Year
  Sex: Female

DRUGS (1)
  1. EYLEA HD [Suspect]
     Active Substance: AFLIBERCEPT
     Indication: Product used for unknown indication
     Dosage: UNK UNK, ONCE, SOLUTION FOR INJECTION ,114.3 MG/ML
     Route: 031
     Dates: start: 20240507, end: 20240507

REACTIONS (9)
  - Retinal deposits [Unknown]
  - Vitritis [Unknown]
  - Uveitis [Unknown]
  - Visual acuity reduced [Unknown]
  - Vitreous opacities [Unknown]
  - Eye irritation [Unknown]
  - Anterior chamber cell [Unknown]
  - Vitreal cells [Unknown]
  - Vision blurred [Unknown]

NARRATIVE: CASE EVENT DATE: 20240507
